FAERS Safety Report 9471350 (Version 1)
Quarter: 2013Q3

REPORT INFORMATION
  Report Type: Spontaneous
  Country: US (occurrence: US)
  Receive Date: 20130822
  Receipt Date: 20130822
  Transmission Date: 20140515
  Serious: Yes (Hospitalization)
  Sender: FDA-Public Use
  Company Number: US-B.I. PHARMACEUTICALS,INC./RIDGEFIELD-2013-BI-25051BP

PATIENT
  Age: 76 Year
  Sex: Female
  Weight: 42 kg

DRUGS (8)
  1. COMBIVENT [Suspect]
     Indication: BRONCHITIS CHRONIC
     Dosage: STRENGTH: 18 MCG / 103 MCG;
     Route: 055
     Dates: start: 2010, end: 201306
  2. PREDNISONE DOSE PACK [Concomitant]
     Indication: DYSPNOEA
     Route: 048
  3. TRIAMTERENE [Concomitant]
     Indication: FLUID RETENTION
     Route: 048
  4. FOSAMAX [Concomitant]
     Indication: OSTEOPOROSIS
     Dosage: 70 MG
     Route: 048
  5. ALBUTEROL [Concomitant]
     Route: 055
  6. ZYRTEC [Concomitant]
     Indication: RHINORRHOEA
     Dosage: 10 MG
     Route: 048
     Dates: start: 2006
  7. SINGULAIR [Concomitant]
     Indication: RHINORRHOEA
     Dosage: 1 ANZ
     Route: 048
     Dates: start: 2006
  8. SYMBICORT [Concomitant]
     Indication: RHINORRHOEA
     Dosage: 2 PUF
     Route: 055
     Dates: start: 2008

REACTIONS (3)
  - Colon cancer [Not Recovered/Not Resolved]
  - Malaise [Unknown]
  - Dyspnoea [Unknown]
